FAERS Safety Report 4720957-9 (Version None)
Quarter: 2005Q3

REPORT INFORMATION
  Report Type: 
  Country: None (occurrence: None)
  Receive Date: 20050720
  Receipt Date: 20050707
  Transmission Date: 20060218
  Serious: Yes (Other)
  Sender: FDA-Public Use
  Company Number: 2005098808

PATIENT
  Age: 43 Year
  Sex: Female

DRUGS (1)
  1. DEPO-PROVERA [Suspect]
     Indication: MENSTRUAL DISCOMFORT
     Dosage: (FIRST INJECTION)
     Dates: start: 20050511, end: 20050511

REACTIONS (1)
  - VAGINAL HAEMORRHAGE [None]
